FAERS Safety Report 7064823-5 (Version None)
Quarter: 2010Q4

REPORT INFORMATION
  Report Type: 
  Country: None (occurrence: None)
  Receive Date: 20101027
  Receipt Date: 19870723
  Transmission Date: 20110411
  Serious: Yes (Death, Hospitalization)
  Sender: FDA-Public Use
  Company Number: US-ROCHE-870200875003

PATIENT
  Age: 90 Year
  Sex: Female

DRUGS (3)
  1. ROCEPHIN [Suspect]
     Route: 065
     Dates: start: 19870709
  2. TOBRAMYCIN [Concomitant]
     Route: 065
  3. ANTIBIOTIC [Concomitant]
     Route: 065

REACTIONS (2)
  - PSEUDOMEMBRANOUS COLITIS [None]
  - TUBERCULOSIS [None]
